FAERS Safety Report 6701322-1 (Version None)
Quarter: 2010Q2

REPORT INFORMATION
  Report Type: 
  Country: None (occurrence: None)
  Receive Date: 20100429
  Receipt Date: 20100422
  Transmission Date: 20101027
  Serious: Yes (Hospitalization)
  Sender: FDA-Public Use
  Company Number: 2008BI009879

PATIENT
  Age: 62 Year
  Sex: Female
  Weight: 71 kg

DRUGS (2)
  1. AVONEX [Suspect]
     Indication: MULTIPLE SCLEROSIS
     Route: 030
     Dates: start: 20061001
  2. XANAX [Concomitant]
     Indication: MUSCLE SPASMS

REACTIONS (9)
  - ABASIA [None]
  - ADVERSE DRUG REACTION [None]
  - BIPOLAR DISORDER [None]
  - CONVULSION [None]
  - FATIGUE [None]
  - ILLOGICAL THINKING [None]
  - INJECTION SITE PAIN [None]
  - LOSS OF CONTROL OF LEGS [None]
  - MUSCULAR WEAKNESS [None]
